FAERS Safety Report 4760194-5 (Version None)
Quarter: 2005Q3

REPORT INFORMATION
  Report Type: 
  Country: None (occurrence: None)
  Receive Date: 20050831
  Receipt Date: 20050811
  Transmission Date: 20060218
  Serious: Yes (Other)
  Sender: FDA-Public Use
  Company Number: USA040466239

PATIENT
  Age: 78 Year
  Sex: Female
  Weight: 61 kg

DRUGS (24)
  1. FORTEO [Suspect]
     Indication: OSTEOPOROSIS
     Dosage: 20 UG/1 DAY
     Dates: start: 20030522
  2. LEVOXYL [Concomitant]
  3. CALCIUM GLUCONATE [Concomitant]
  4. VITAMIN E [Concomitant]
  5. MULTI-VITAMIN [Concomitant]
  6. FOLIC ACID [Concomitant]
  7. VITAMIN B-12 [Concomitant]
  8. FOSAMAX [Concomitant]
  9. PROTONIX [Concomitant]
  10. HYZAAR [Concomitant]
  11. ASACOL [Concomitant]
  12. NORVASC [Concomitant]
  13. TENORMIN [Concomitant]
  14. MSM (MSM) [Concomitant]
  15. GLUCOSAMINE [Concomitant]
  16. MAGNESIUM [Concomitant]
  17. ASPIRIN [Concomitant]
  18. BIOTIN [Concomitant]
  19. Q 10 (UBIDECARENONE) [Concomitant]
  20. FISH OIL [Concomitant]
  21. ZINC [Concomitant]
  22. SELENIUM SULFIDE [Concomitant]
  23. VIOXX [Concomitant]
  24. CENTRUM [Concomitant]

REACTIONS (5)
  - HIP ARTHROPLASTY [None]
  - HYPERPARATHYROIDISM [None]
  - INJECTION SITE INDURATION [None]
  - NAIL DISORDER [None]
  - PHARMACEUTICAL PRODUCT COMPLAINT [None]
